FAERS Safety Report 4768258-7 (Version None)
Quarter: 2005Q3

REPORT INFORMATION
  Report Type: 
  Country: None (occurrence: None)
  Receive Date: 20050913
  Receipt Date: 20050902
  Transmission Date: 20060218
  Serious: Yes (Death, Hospitalization)
  Sender: FDA-Public Use
  Company Number: GXKR2005DK01553

PATIENT
  Age: 61 Year
  Sex: Female

DRUGS (7)
  1. AMOXICILLIN [Suspect]
     Indication: HELICOBACTER INFECTION
     Dosage: ORAL
     Route: 048
     Dates: start: 20040116, end: 20040123
  2. CLARITHROMYCIN [Suspect]
     Indication: HELICOBACTER INFECTION
     Dosage: ORAL
     Route: 048
     Dates: start: 20040116, end: 20040123
  3. NEXIUM [Concomitant]
  4. LANSOPRAZOLE [Concomitant]
  5. CIPROFLOXACIN [Concomitant]
  6. ZINACEF [Concomitant]
  7. METRONIDAZOLE [Concomitant]

REACTIONS (4)
  - CLOSTRIDIUM COLITIS [None]
  - DIARRHOEA [None]
  - GASTROINTESTINAL INFLAMMATION [None]
  - MALAISE [None]
